FAERS Safety Report 18721901 (Version 1)
Quarter: 2021Q1

REPORT INFORMATION
  Report Type: Spontaneous
  Country: FR (occurrence: FR)
  Receive Date: 20210111
  Receipt Date: 20210111
  Transmission Date: 20210419
  Serious: Yes (Hospitalization)
  Sender: FDA-Public Use
  Company Number: FR-SUN PHARMACEUTICAL INDUSTRIES LTD-2020RR-274615

PATIENT
  Age: 16 Year
  Sex: Female
  Weight: 54 kg

DRUGS (3)
  1. FLUOXETINE [Suspect]
     Active Substance: FLUOXETINE HYDROCHLORIDE
     Indication: SUICIDAL BEHAVIOUR
     Dosage: 420 MILLIGRAM, IN TOTAL
     Route: 048
     Dates: start: 20200426, end: 20200426
  2. LARGACTIL 25 MG, COMPRIME PELLICULE SECABLE [Suspect]
     Active Substance: CHLORPROMAZINE HYDROCHLORIDE
     Indication: SUICIDAL BEHAVIOUR
     Dosage: 375 MILLIGRAM, IN TOTAL
     Route: 048
     Dates: start: 20200426, end: 20200426
  3. MOGADON 5 MG, COMPRIME SECABLE [Suspect]
     Active Substance: NITRAZEPAM
     Indication: SUICIDAL BEHAVIOUR
     Dosage: 50 MILLIGRAM, IN TOTAL
     Route: 048
     Dates: start: 20200426, end: 20200426

REACTIONS (2)
  - Coma [Not Recovered/Not Resolved]
  - Miosis [Not Recovered/Not Resolved]

NARRATIVE: CASE EVENT DATE: 20200426
